FAERS Safety Report 8101029-2 (Version None)
Quarter: 2012Q1

REPORT INFORMATION
  Report Type: 
  Country: None (occurrence: None)
  Receive Date: 20120131
  Receipt Date: 20120124
  Transmission Date: 20120608
  Serious: Yes (Other)
  Sender: FDA-Public Use
  Company Number: US-TEVA-318954USA

PATIENT
  Sex: Female

DRUGS (6)
  1. OLANZAPINE [Concomitant]
     Indication: DEPRESSION
  2. LEVOTHYROXINE SODIUM [Concomitant]
     Indication: HYPOTHYROIDISM
  3. CLONAZEPAM [Suspect]
     Indication: STRESS
     Route: 048
     Dates: start: 20110701
  4. FLUTICASONE PROPIONATE [Concomitant]
     Indication: HYPERSENSITIVITY
  5. CETIRIZINE HCL [Concomitant]
  6. METFORMIN HCL [Concomitant]
     Indication: INSULIN RESISTANCE

REACTIONS (4)
  - RASH [None]
  - MALAISE [None]
  - HYPERTENSION [None]
  - ANAPHYLACTIC REACTION [None]
